FAERS Safety Report 17960129 (Version 1)
Quarter: 2020Q2

REPORT INFORMATION
  Report Type: Spontaneous
  Country: US (occurrence: US)
  Receive Date: 20200630
  Receipt Date: 20200630
  Transmission Date: 20200714
  Serious: No
  Sender: FDA-Public Use
  Company Number: US-TEVA-2020-US-1788886

PATIENT
  Sex: Female

DRUGS (1)
  1. AJOVY [Suspect]
     Active Substance: FREMANEZUMAB-VFRM
     Indication: MIGRAINE
     Dosage: STARTED ABOUT A YEAR AGO
     Route: 065
     Dates: start: 2019

REACTIONS (2)
  - Needle issue [Unknown]
  - Product use complaint [Unknown]
